FAERS Safety Report 24850986 (Version 8)
Quarter: 2025Q3

REPORT INFORMATION
  Report Type: Report from Study
  Country: JP (occurrence: JP)
  Receive Date: 20250116
  Receipt Date: 20250803
  Transmission Date: 20251020
  Serious: Yes (Other)
  Sender: ALEXION PHARMACEUTICALS
  Company Number: JP-ASTRAZENECA-230011896_011820_P_1

PATIENT
  Age: 18 Year
  Sex: Female
  Weight: 29 kg

DRUGS (4)
  1. KOSELUGO [Suspect]
     Active Substance: SELUMETINIB
     Indication: Neurofibroma
     Dosage: 25 MILLIGRAM, BID
     Dates: start: 20230131, end: 20230717
  2. KOSELUGO [Suspect]
     Active Substance: SELUMETINIB
     Indication: Neurofibromatosis
     Dosage: 35 MILLIGRAM, QD
     Dates: start: 20230815
  3. EPINASTINE HYDROCHLORIDE [Concomitant]
     Active Substance: EPINASTINE HYDROCHLORIDE
     Indication: Dermatitis
     Dates: start: 20230228, end: 20230523
  4. BETAMETHASONE SODIUM PHOSPHATE [Concomitant]
     Active Substance: BETAMETHASONE SODIUM PHOSPHATE
     Indication: Dermatitis

REACTIONS (9)
  - Uveitis [Recovered/Resolved]
  - Central serous chorioretinopathy [Recovered/Resolved]
  - Urinary occult blood positive [Recovered/Resolved]
  - Dermatitis acneiform [Recovered/Resolved]
  - Diarrhoea [Recovered/Resolved]
  - Dermatitis [Unknown]
  - Acne [Unknown]
  - Photosensitivity reaction [Unknown]
  - Paronychia [Unknown]

NARRATIVE: CASE EVENT DATE: 20230214
